FAERS Safety Report 4552469-X (Version None)
Quarter: 2005Q1

REPORT INFORMATION
  Report Type: 
  Country: None (occurrence: None)
  Receive Date: 20050114
  Receipt Date: 20041025
  Transmission Date: 20050727
  Serious: No
  Sender: FDA-Public Use
  Company Number: US-BRISTOL-MYERS SQUIBB COMPANY-12744629

PATIENT
  Age: 50 Year
  Sex: Female

DRUGS (7)
  1. PLATINOL-AQ [Suspect]
     Indication: OVARIAN CANCER
     Dates: start: 20041021, end: 20041021
  2. TAXOL [Concomitant]
     Indication: OVARIAN CANCER
  3. DEXAMETHASONE [Concomitant]
     Indication: PREMEDICATION
     Dosage: DOSES 6 + 12 HOURS PRIOR TO THERAPY
     Route: 048
     Dates: start: 20041021, end: 20041021
  4. DEXAMETHASONE [Concomitant]
     Route: 042
     Dates: start: 20041021, end: 20041021
  5. KYTRIL [Concomitant]
     Indication: PREMEDICATION
  6. ZANTAC [Concomitant]
     Indication: PREMEDICATION
     Route: 042
  7. BENADRYL [Concomitant]
     Indication: PREMEDICATION

REACTIONS (4)
  - FEELING HOT [None]
  - FLUSHING [None]
  - NAUSEA [None]
  - RASH [None]
